FAERS Safety Report 5157088-2 (Version None)
Quarter: 2006Q4

REPORT INFORMATION
  Report Type: 
  Country: None (occurrence: None)
  Receive Date: 20061127
  Receipt Date: 20060308
  Transmission Date: 20070319
  Serious: Yes (Hospitalization, Other)
  Sender: FDA-Public Use
  Company Number: US-ELI_LILLY_AND_COMPANY-US200605006305

PATIENT
  Age: 27 Year
  Sex: Female
  Weight: 122.45 kg

DRUGS (9)
  1. ZYPREXA [Suspect]
     Indication: HALLUCINATION
     Dosage: 5 MG, UNK
  2. ZYPREXA [Suspect]
     Dosage: 10 MG, UNK
  3. ZYPREXA [Suspect]
     Dosage: 20 MG, UNK
  4. ABILIFY [Concomitant]
     Dates: start: 20040101
  5. SEROQUEL [Concomitant]
     Dates: start: 19990101, end: 20060701
  6. GEODON [Concomitant]
     Dates: start: 20030101, end: 20060701
  7. HALDOL [Concomitant]
     Dates: start: 20040101, end: 20050101
  8. PROZAC [Concomitant]
     Dates: start: 20000101, end: 20020101
  9. PAXIL [Concomitant]
     Dates: start: 20000101, end: 20030101

REACTIONS (3)
  - DIABETES MELLITUS [None]
  - DRUG EXPOSURE DURING PREGNANCY [None]
  - MYOCARDIAL INFARCTION [None]
